FAERS Safety Report 5883103-4 (Version None)
Quarter: 2008Q3

REPORT INFORMATION
  Report Type: 
  Country: None (occurrence: None)
  Receive Date: 20080913
  Receipt Date: 20080829
  Transmission Date: 20090109
  Serious: No
  Sender: FDA-Public Use
  Company Number: US-ABBOTT-08P-163-0473239-00

PATIENT
  Sex: Female
  Weight: 90.8 kg

DRUGS (6)
  1. HUMIRA [Suspect]
     Indication: PSORIATIC ARTHROPATHY
     Route: 050
     Dates: start: 20080811
  2. LEVOTHYROXINE SODIUM [Concomitant]
     Indication: THYROID DISORDER
     Route: 048
     Dates: start: 20000101
  3. INEGY [Concomitant]
     Indication: BLOOD CHOLESTEROL
     Dosage: 10/40 MG
     Route: 048
     Dates: start: 20071201
  4. CLONAZEPAM [Concomitant]
     Indication: INSOMNIA
     Route: 048
     Dates: start: 20000101
  5. OXAPROZIN [Concomitant]
     Indication: INFLAMMATION
     Dosage: 600 MG X2
     Route: 048
     Dates: start: 20070101
  6. CONTRACEPTIVES NOS [Concomitant]
     Indication: CONTRACEPTION
     Route: 048
     Dates: start: 20060101

REACTIONS (1)
  - CONTUSION [None]
